FAERS Safety Report 8869798 (Version 1)
Quarter: 2012Q4

REPORT INFORMATION
  Report Type: 
  Country: US (occurrence: US)
  Receive Date: 20121026
  Receipt Date: 20121026
  Transmission Date: 20130627
  Serious: No
  Sender: FDA-Public Use
  Company Number: US-AMGEN-USASP2012044104

PATIENT
  Age: 55 Year
  Sex: Female
  Weight: 95.24 kg

DRUGS (14)
  1. ENBREL [Suspect]
     Indication: PRODUCT USED FOR UNKNOWN INDICATION
     Dosage: 50 mg, qwk
     Route: 058
  2. CORGARD [Concomitant]
     Dosage: 20 mg, UNK
     Route: 048
  3. ZOCOR [Concomitant]
     Dosage: 5 mg, UNK
     Route: 048
  4. AMBIEN [Concomitant]
     Dosage: 5 mg, UNK
     Route: 048
  5. FOLIC ACID [Concomitant]
     Route: 048
  6. MICROZIDE                          /00022001/ [Concomitant]
     Dosage: 12.5 mg, UNK
     Route: 048
  7. CELEBREX [Concomitant]
     Dosage: 200 mg, UNK
     Route: 048
  8. FLEXERIL                           /00428402/ [Concomitant]
     Dosage: 10 mg, UNK
     Route: 048
  9. IMITREX                            /01044801/ [Concomitant]
     Dosage: 25 mg, UNK
     Route: 048
  10. FIORICET [Concomitant]
     Route: 048
  11. CO Q 10 [Concomitant]
     Route: 048
  12. VITAMIN D3 [Concomitant]
     Route: 048
  13. EXCEDRIN                           /00110301/ [Concomitant]
     Route: 048
  14. FLAXSEED OIL [Concomitant]
     Route: 048

REACTIONS (2)
  - Injection site erythema [Unknown]
  - Injection site swelling [Unknown]
